FAERS Safety Report 10544211 (Version 2)
Quarter: 2014Q4

REPORT INFORMATION
  Report Type: Spontaneous
  Country: SE (occurrence: SE)
  Receive Date: 20141027
  Receipt Date: 20141127
  Transmission Date: 20150529
  Serious: Yes (Hospitalization)
  Sender: FDA-Public Use
  Company Number: SE-009507513-1410SWE011756

PATIENT
  Age: 38 Year
  Sex: Female

DRUGS (2)
  1. GONGJINHYANG SEOL WHITENING INTENSIVE [Concomitant]
     Active Substance: DIACETYL BENZOYL LATHYROL
     Indication: ANAEMIA
     Dosage: UNK
     Route: 048
  2. TIMOTHY, STANDARDIZED [Suspect]
     Active Substance: PHLEUM PRATENSE POLLEN
     Indication: PRODUCT USED FOR UNKNOWN INDICATION
     Dosage: DOSE: 75000 SQ-T; DAILY
     Route: 060
     Dates: start: 20140206, end: 201404

REACTIONS (5)
  - Pyrexia [Recovered/Resolved]
  - Paraesthesia oral [Recovered/Resolved]
  - Parotid gland enlargement [Recovered/Resolved]
  - Parotitis [Recovered/Resolved]
  - Mouth swelling [Recovered/Resolved]

NARRATIVE: CASE EVENT DATE: 201405
